FAERS Safety Report 8790950 (Version 1)
Quarter: 2012Q4

REPORT INFORMATION
  Report Type: Spontaneous
  Country: US (occurrence: None)
  Receive Date: 20120910
  Receipt Date: 20120910
  Transmission Date: 20130627
  Serious: Yes (Hospitalization)
  Sender: FDA-Public Use
  Company Number: AUR-APL-2012-03776

PATIENT
  Age: 51 Year
  Sex: Male

DRUGS (5)
  1. RAMIPRIL (RAMIPRIL) [Suspect]
     Indication: HYPERTENSION
     Dates: end: 20120420
  2. CONCOR (BISOPROLOL FUMARATE) [Concomitant]
  3. L-THYROXIN (LEVOTHYROXINE SODIUM) [Concomitant]
  4. SIMVASTATIN [Concomitant]
  5. ASA (ACETYLSALICYLIC ACID) [Concomitant]

REACTIONS (2)
  - Cough [None]
  - Retinal detachment [None]
